FAERS Safety Report 8018206-1 (Version None)
Quarter: 2011Q4

REPORT INFORMATION
  Report Type: 
  Country: None (occurrence: None)
  Receive Date: 20111227
  Receipt Date: 20111213
  Transmission Date: 20120403
  Serious: Yes (Hospitalization)
  Sender: FDA-Public Use
  Company Number: 2011SGN00207

PATIENT
  Age: 20 Year
  Sex: Female
  Weight: 72 kg

DRUGS (6)
  1. HYDROMORPHONE HCL [Concomitant]
  2. PREDNISOLONE ACETATE [Concomitant]
  3. BRENTUXIMAB VEDOTIN (BRENTUXIMAB VEDOTIN) INJECTION [Suspect]
     Indication: HODGKIN'S DISEASE
     Dosage: 1.8 MG/KG, Q21D, INTRAVENOUS
     Route: 042
     Dates: start: 20110714, end: 20110824
  4. DEXAMETHASONE SODIUM PHOSPHATE [Concomitant]
  5. MORPHINE SULFATE INJ [Concomitant]
  6. RABEPRAZOLE SODIUM [Concomitant]

REACTIONS (3)
  - RADIATION PNEUMONITIS [None]
  - PNEUMONIA BACTERIAL [None]
  - RADIATION FIBROSIS - LUNG [None]
